FAERS Safety Report 15491359 (Version 1)
Quarter: 2018Q4

REPORT INFORMATION
  Report Type: Spontaneous
  Country: JP (occurrence: JP)
  Receive Date: 20181012
  Receipt Date: 20181012
  Transmission Date: 20190205
  Serious: Yes (Other)
  Sender: FDA-Public Use
  Company Number: JP-TEVA-2018-JP-005300J

PATIENT
  Age: 71 Year
  Sex: Male

DRUGS (2)
  1. KOLBET [Concomitant]
     Active Substance: IGURATIMOD
     Dosage: 50 MILLIGRAM DAILY;
     Route: 048
     Dates: start: 20141226
  2. PREDNISOLONE TABLETS 5MG. [Suspect]
     Active Substance: PREDNISOLONE
     Indication: RHEUMATIC DISORDER
     Dosage: 10 MILLIGRAM DAILY;
     Route: 048
     Dates: start: 20141226

REACTIONS (1)
  - Panniculitis [Unknown]

NARRATIVE: CASE EVENT DATE: 20180920
